FAERS Safety Report 8414751-5 (Version None)
Quarter: 2012Q2

REPORT INFORMATION
  Report Type: 
  Country: None (occurrence: None)
  Receive Date: 20120606
  Receipt Date: 20120529
  Transmission Date: 20120825
  Serious: Yes (Other)
  Sender: FDA-Public Use
  Company Number: US-AMGEN-USASP2012033555

PATIENT
  Age: 55 Year
  Sex: Male

DRUGS (13)
  1. ETHAMBUTOL HYDROCHLORIDE [Concomitant]
  2. AZITHROMYCIN [Concomitant]
  3. RALTEGRAVIR [Concomitant]
  4. VALGANCICLOVIR [Concomitant]
  5. AZT [Concomitant]
     Dates: end: 20120411
  6. RITONAVIR [Concomitant]
  7. SULFAMETHOXAZOLE AND TRIMETHOPRIM [Concomitant]
     Dates: end: 20120420
  8. MOXIFLOXACIN [Concomitant]
  9. RIFABUTIN [Concomitant]
     Dates: start: 20100525
  10. GANCICLOVIR [Concomitant]
     Dates: end: 20120413
  11. ARANESP [Suspect]
     Indication: ANAEMIA
     Dosage: 25 MUG, UNK
     Route: 058
     Dates: start: 20120330
  12. TRUVADA [Concomitant]
  13. DARUNAVIR HYDRATE [Concomitant]

REACTIONS (2)
  - DRUG INEFFECTIVE [None]
  - APLASIA PURE RED CELL [None]
